FAERS Safety Report 22180486 (Version 2)
Quarter: 2023Q2

REPORT INFORMATION
  Report Type: Report from Study
  Country: MX (occurrence: MX)
  Receive Date: 20230406
  Receipt Date: 20230421
  Transmission Date: 20230722
  Serious: Yes (Other)
  Sender: FDA-Public Use
  Company Number: MX-002147023-NVSC2022MX252223

PATIENT
  Age: 47 Year
  Sex: Female
  Weight: 75 kg

DRUGS (4)
  1. METFORMIN HYDROCHLORIDE\VILDAGLIPTIN [Suspect]
     Active Substance: METFORMIN HYDROCHLORIDE\VILDAGLIPTIN
     Indication: Diabetes mellitus
     Dosage: 1 DOSAGE FORM, BID, BY MOUTH
     Route: 048
     Dates: start: 20130601, end: 2015
  2. METFORMIN HYDROCHLORIDE\VILDAGLIPTIN [Suspect]
     Active Substance: METFORMIN HYDROCHLORIDE\VILDAGLIPTIN
     Indication: Blood glucose abnormal
     Dosage: 1 DOSAGE FORM, BID, BY MOUTH
     Route: 048
     Dates: start: 20221103
  3. METFORMIN HYDROCHLORIDE\VILDAGLIPTIN [Suspect]
     Active Substance: METFORMIN HYDROCHLORIDE\VILDAGLIPTIN
     Dosage: 1 DOSAGE FORM, BID, BY MOUTH
     Route: 048
     Dates: start: 202212
  4. ENTRESTO [Suspect]
     Active Substance: SACUBITRIL\VALSARTAN
     Indication: Hypertension
     Dosage: 1 DOSAGE FORM, QD, BY MOUTH
     Route: 048
     Dates: start: 202211

REACTIONS (18)
  - Haemorrhage [Recovering/Resolving]
  - Hypertension [Recovering/Resolving]
  - Choking sensation [Unknown]
  - Dyspnoea [Unknown]
  - Cardiac murmur [Not Recovered/Not Resolved]
  - Cardiac discomfort [Unknown]
  - Arthralgia [Not Recovered/Not Resolved]
  - Musculoskeletal pain [Unknown]
  - Chest pain [Unknown]
  - Axillary pain [Unknown]
  - Mobility decreased [Unknown]
  - Pain in extremity [Unknown]
  - Abnormal sensation in eye [Unknown]
  - Irritability [Recovering/Resolving]
  - Weight decreased [Not Recovered/Not Resolved]
  - Blood glucose increased [Recovering/Resolving]
  - Headache [Unknown]
  - Product use in unapproved indication [Unknown]

NARRATIVE: CASE EVENT DATE: 20191019
